FAERS Safety Report 12729457 (Version 1)
Quarter: 2016Q3

REPORT INFORMATION
  Report Type: Spontaneous
  Country: US (occurrence: US)
  Receive Date: 20160908
  Receipt Date: 20160908
  Transmission Date: 20161109
  Serious: Yes (Other)
  Sender: FDA-Public Use
  Company Number: None

PATIENT
  Age: 37 Year
  Sex: Male
  Weight: 97.52 kg

DRUGS (1)
  1. CIPROFLOXACIN, 500 MG [Suspect]
     Active Substance: CIPROFLOXACIN
     Indication: PROSTATITIS
     Route: 048
     Dates: start: 20160715, end: 20160728

REACTIONS (6)
  - Back pain [None]
  - Ligament disorder [None]
  - Myalgia [None]
  - Tenderness [None]
  - Muscle tightness [None]
  - Movement disorder [None]

NARRATIVE: CASE EVENT DATE: 20160803
